FAERS Safety Report 6263365-4 (Version None)
Quarter: 2009Q3

REPORT INFORMATION
  Report Type: 
  Country: None (occurrence: None)
  Receive Date: 20090710
  Receipt Date: 20080804
  Transmission Date: 20100115
  Serious: No
  Sender: FDA-Public Use
  Company Number: A0741134A

PATIENT
  Age: 54 Year
  Sex: Female

DRUGS (3)
  1. FLOVENT [Suspect]
     Indication: COUGH
     Dosage: 2PUFF TWICE PER DAY
     Route: 055
     Dates: start: 20080728, end: 20080803
  2. MUCINEX [Concomitant]
  3. SUDAFED COLD + COUGH [Concomitant]

REACTIONS (1)
  - RASH [None]
